FAERS Safety Report 24011888 (Version 1)
Quarter: 2024Q2

REPORT INFORMATION
  Report Type: Spontaneous
  Country: US (occurrence: US)
  Receive Date: 20240625
  Receipt Date: 20240625
  Transmission Date: 20240716
  Serious: Yes (Other)
  Sender: FDA-Public Use
  Company Number: US-MLMSERVICE-20210817-3055774-1

PATIENT
  Age: 37 Year
  Sex: Female

DRUGS (2)
  1. HYDROCORTISONE [Suspect]
     Active Substance: HYDROCORTISONE\HYDROCORTISONE ACETATE
     Indication: Product used for unknown indication
     Dosage: HYDROCORTISONE INTO HER THIGH
     Route: 065
  2. SOMATROPIN [Suspect]
     Active Substance: SOMATROPIN
     Indication: Product used for unknown indication
     Dosage: INTO HER ABDOMEN
     Route: 065

REACTIONS (3)
  - Neutrophilic panniculitis [Recovering/Resolving]
  - Mycobacterium chelonae infection [Recovering/Resolving]
  - Self-medication [Unknown]
